FAERS Safety Report 6425252-8 (Version None)
Quarter: 2009Q4

REPORT INFORMATION
  Report Type: 
  Country: None (occurrence: None)
  Receive Date: 20091103
  Receipt Date: 20091023
  Transmission Date: 20100525
  Serious: No
  Sender: FDA-Public Use
  Company Number: US-B.I. PHARMACEUTICALS,INC./RIDGEFIELD-2009-BP-09552BP

PATIENT
  Sex: Male

DRUGS (4)
  1. FLOMAX [Suspect]
     Indication: BENIGN PROSTATIC HYPERPLASIA
     Dosage: 0.4 MG
     Route: 048
     Dates: start: 20040101, end: 20081008
  2. FINASTERIDE [Suspect]
     Indication: PROSTATIC DISORDER
     Route: 048
     Dates: start: 20070101, end: 20090101
  3. OXYGEN [Concomitant]
     Indication: CARDIAC FAILURE CONGESTIVE
  4. IPRATROPIUM BROMIDE [Concomitant]

REACTIONS (9)
  - BACK PAIN [None]
  - BREAST DISCHARGE [None]
  - BREAST DISCOMFORT [None]
  - DIZZINESS [None]
  - PRURITUS [None]
  - RESIDUAL URINE [None]
  - RHINORRHOEA [None]
  - URINE FLOW DECREASED [None]
  - VISION BLURRED [None]
